FAERS Safety Report 11354395 (Version 3)
Quarter: 2015Q3

REPORT INFORMATION
  Report Type: Spontaneous
  Country: US (occurrence: US)
  Receive Date: 20150807
  Receipt Date: 20150924
  Transmission Date: 20151125
  Serious: No
  Sender: FDA-Public Use
  Company Number: US-PFIZER INC-2015259756

PATIENT
  Age: 76 Year
  Sex: Female

DRUGS (2)
  1. SYSTANE BALANCE [Concomitant]
     Active Substance: PROPYLENE GLYCOL
     Indication: MEIBOMIANITIS
     Dosage: IN BOTH EYES AS NEEDED
     Route: 047
     Dates: start: 20140111
  2. LATANOPROST. [Suspect]
     Active Substance: LATANOPROST
     Indication: GLAUCOMA
     Dosage: 2 GTT, 1X/DAY (ONE DROP IN EACH EYE AT BEDTIME)
     Route: 047
     Dates: end: 20120514

REACTIONS (5)
  - Product substitution issue [Not Recovered/Not Resolved]
  - Eye irritation [Recovered/Resolved]
  - Ocular hyperaemia [Recovered/Resolved]
  - Drug intolerance [Not Recovered/Not Resolved]
  - Dry eye [Recovered/Resolved]
